FAERS Safety Report 26080671 (Version 2)
Quarter: 2025Q4

REPORT INFORMATION
  Report Type: Report from Study
  Country: PK (occurrence: PK)
  Receive Date: 20251124
  Receipt Date: 20251128
  Transmission Date: 20260117
  Serious: Yes (Death)
  Sender: ROCHE
  Company Number: PK-ROCHE-10000439396

PATIENT
  Age: 55 Year
  Sex: Female

DRUGS (1)
  1. RITUXIMAB [Suspect]
     Active Substance: RITUXIMAB
     Indication: Chronic lymphocytic leukaemia
     Route: 042
     Dates: start: 20251014

REACTIONS (1)
  - Respiratory disorder [Fatal]

NARRATIVE: CASE EVENT DATE: 20251014
